FAERS Safety Report 8862302 (Version 2)
Quarter: 2013Q1

REPORT INFORMATION
  Report Type: Report from Study
  Country: DE (occurrence: DE)
  Receive Date: 20121026
  Receipt Date: 20130207
  Transmission Date: 20140127
  Serious: Yes (Hospitalization)
  Sender: FDA-Public Use
  Company Number: DE-JNJFOC-20121012151

PATIENT
  Age: 68 Year
  Sex: Male

DRUGS (4)
  1. SIMPONI [Suspect]
     Indication: RHEUMATOID ARTHRITIS
     Dosage: 50 TO 100 MG
     Route: 065
     Dates: start: 201205, end: 201207
  2. PREDNISOLONE [Concomitant]
     Dates: start: 201105
  3. CONCOR [Concomitant]
  4. MARCUMAR [Concomitant]

REACTIONS (3)
  - Pyrexia [Recovered/Resolved]
  - Night sweats [Recovered/Resolved]
  - Polyneuropathy [Unknown]
